FAERS Safety Report 7110865-0 (Version None)
Quarter: 2010Q4

REPORT INFORMATION
  Report Type: 
  Country: None (occurrence: None)
  Receive Date: 20101118
  Receipt Date: 20101105
  Transmission Date: 20110411
  Serious: Yes (Other)
  Sender: FDA-Public Use
  Company Number: PHHY2010BR75256

PATIENT
  Age: 26 Year
  Sex: Male

DRUGS (2)
  1. LEPONEX [Suspect]
     Indication: SCHIZOPHRENIA
     Dosage: 100 MG, 4 TABLETS AT NIGHT
  2. VENLAFAXINE HYDROCHLORIDE [Suspect]
     Dosage: 150 MG, UNK

REACTIONS (6)
  - DISTURBANCE IN ATTENTION [None]
  - FATIGUE [None]
  - PHARYNGEAL DISORDER [None]
  - PHARYNGEAL OPERATION [None]
  - SOMNOLENCE [None]
  - SURGERY [None]
